FAERS Safety Report 9058854 (Version 18)
Quarter: 2024Q1

REPORT INFORMATION
  Report Type: Other
  Country: CA (occurrence: None)
  Receive Date: 20130204
  Receipt Date: 20240322
  Transmission Date: 20240410
  Serious: Yes (Other)
  Sender: FDA-Public Use
  Company Number: CA-ROCHE-1159748

PATIENT
  Age: 44 Year
  Sex: Female
  Weight: 63 kg

DRUGS (15)
  1. ACTEMRA [Suspect]
     Active Substance: TOCILIZUMAB
     Indication: Rheumatoid arthritis
     Route: 042
     Dates: start: 20110318
  2. ACTEMRA [Suspect]
     Active Substance: TOCILIZUMAB
     Route: 042
     Dates: start: 20110610
  3. ACTEMRA [Suspect]
     Active Substance: TOCILIZUMAB
     Route: 042
     Dates: start: 20111011
  4. ACTEMRA [Suspect]
     Active Substance: TOCILIZUMAB
     Route: 042
     Dates: start: 20111108
  5. ACTEMRA [Suspect]
     Active Substance: TOCILIZUMAB
     Route: 042
     Dates: start: 20121210
  6. ACTEMRA [Suspect]
     Active Substance: TOCILIZUMAB
     Route: 042
     Dates: start: 20130618
  7. ACTEMRA [Suspect]
     Active Substance: TOCILIZUMAB
     Route: 042
     Dates: start: 20140513, end: 20141209
  8. ACTEMRA [Suspect]
     Active Substance: TOCILIZUMAB
     Indication: Rheumatoid arthritis
     Route: 058
     Dates: start: 20150204
  9. COMBIGAN [Concomitant]
     Active Substance: BRIMONIDINE TARTRATE\TIMOLOL MALEATE
     Indication: Uveitis
  10. LUMIGAN [Concomitant]
     Active Substance: BIMATOPROST
     Indication: Uveitis
  11. LOTEMAX [Concomitant]
     Active Substance: LOTEPREDNOL ETABONATE
     Indication: Uveitis
  12. PREDNISONE [Concomitant]
     Active Substance: PREDNISONE
     Dates: end: 20110111
  13. ORENCIA [Concomitant]
     Active Substance: ABATACEPT
     Dates: end: 20110111
  14. HEPATITIS B VIRUS VACCINE [Concomitant]
     Active Substance: HEPATITIS B VIRUS VACCINE
     Dosage: 3RD DOSE
     Dates: start: 201108, end: 201108
  15. BETOPTIC [Concomitant]
     Active Substance: BETAXOLOL HYDROCHLORIDE

REACTIONS (12)
  - Glaucoma [Unknown]
  - Arthropathy [Recovering/Resolving]
  - Nasopharyngitis [Recovering/Resolving]
  - Weight decreased [Not Recovered/Not Resolved]
  - Eye disorder [Recovered/Resolved]
  - Weight increased [Unknown]
  - Musculoskeletal discomfort [Not Recovered/Not Resolved]
  - Injection site reaction [Unknown]
  - Erythema [Unknown]
  - Swelling [Unknown]
  - Pruritus [Unknown]
  - Cough [Not Recovered/Not Resolved]

NARRATIVE: CASE EVENT DATE: 20121120
